FAERS Safety Report 6332856-X (Version None)
Quarter: 2009Q3

REPORT INFORMATION
  Report Type: 
  Country: None (occurrence: None)
  Receive Date: 20090827
  Receipt Date: 20090827
  Transmission Date: 20100115
  Serious: No
  Sender: FDA-Public Use
  Company Number: None

PATIENT

DRUGS (2)
  1. DULCOLAX [Suspect]
     Dosage: TABLETS
     Route: 048
  2. BISACODYL [Suspect]
     Dosage: TABLETS
     Route: 048

REACTIONS (3)
  - CIRCUMSTANCE OR INFORMATION CAPABLE OF LEADING TO MEDICATION ERROR [None]
  - DRUG NAME CONFUSION [None]
  - MEDICATION ERROR [None]
